FAERS Safety Report 4666471-0 (Version None)
Quarter: 2005Q2

REPORT INFORMATION
  Report Type: 
  Country: None (occurrence: None)
  Receive Date: 20050518
  Receipt Date: 20050506
  Transmission Date: 20051028
  Serious: Yes (Other)
  Sender: FDA-Public Use
  Company Number: 26441

PATIENT
  Age: 16 Year
  Sex: Female

DRUGS (1)
  1. ALDARA [Suspect]
     Indication: ACTINIC KERATOSIS
     Dosage: (5 IN 1 WEEK (S)), TOPICAL
     Route: 061
     Dates: start: 20040901, end: 20041201

REACTIONS (4)
  - APPLICATION SITE ERYTHEMA [None]
  - APPLICATION SITE IRRITATION [None]
  - NEOPLASM SKIN [None]
  - SKIN LESION [None]
